FAERS Safety Report 9009311 (Version 1)
Quarter: 2013Q1

REPORT INFORMATION
  Report Type: Spontaneous
  Country: US (occurrence: US)
  Receive Date: 20130111
  Receipt Date: 20130111
  Transmission Date: 20140127
  Serious: Yes (Death)
  Sender: FDA-Public Use
  Company Number: US-PFIZER INC-2013007517

PATIENT
  Age: 44 Year
  Sex: Female

DRUGS (7)
  1. TRAMADOL [Suspect]
     Dosage: UNK
     Route: 048
  2. QUETIAPINE [Suspect]
     Dosage: UNK
     Route: 048
  3. LISINOPRIL [Suspect]
     Dosage: UNK
  4. CYCLOBENZAPRINE [Suspect]
     Route: 048
  5. ESZOPICLONE [Suspect]
     Route: 048
  6. METAXALONE [Suspect]
     Dosage: UNK
     Route: 048
  7. GABAPENTIN [Suspect]
     Dosage: UNK
     Route: 048

REACTIONS (1)
  - Completed suicide [Fatal]
